FAERS Safety Report 16393647 (Version 9)
Quarter: 2020Q4

REPORT INFORMATION
  Report Type: Spontaneous
  Country: US (occurrence: US)
  Receive Date: 20190605
  Receipt Date: 20201208
  Transmission Date: 20210113
  Serious: No
  Sender: FDA-Public Use
  Company Number: US-PFIZER INC-2018303304

PATIENT
  Age: 68 Year
  Sex: Female
  Weight: 91 kg

DRUGS (6)
  1. DILANTIN [Suspect]
     Active Substance: PHENYTOIN
     Indication: EPILEPSY
     Dosage: 200 MG, TWICE A DAY (2 CAPSULES IN THE MORNING AND 2 CAPSULES IN THE EVENING, TOTAL OF 4 PER DAY)
     Route: 048
  2. SODIUM VALPROATE [Concomitant]
     Active Substance: VALPROATE SODIUM
     Indication: EPILEPSY
     Dosage: 500 MG, 2X/DAY,(250 MG 2 CAPSULES BY MOUTH TWICE A DAY)
     Route: 048
  3. DILANTIN [Suspect]
     Active Substance: PHENYTOIN
     Dosage: 200 MG, 2X/DAY
     Route: 048
  4. DILANTIN [Suspect]
     Active Substance: PHENYTOIN
     Indication: SEIZURE
     Dosage: 200 MG, TWICE A DAY (2 CAPSULES IN THE MORNING AND 2 CAPSULES IN THE EVENING, TOTAL OF 4 PER DAY)
     Route: 048
  5. DILANTIN [Suspect]
     Active Substance: PHENYTOIN
     Dosage: UNK (QUANTITY FOR 90 DAYS: 360)
  6. DILANTIN [Suspect]
     Active Substance: PHENYTOIN
     Dosage: 100 MG, 4X/DAY,(100 MG 4 CAPSULES BY MOUTH A DAY 2 IN THE MORNING AND 2 AT NOON)
     Route: 048

REACTIONS (6)
  - Feeling abnormal [Unknown]
  - Product prescribing error [Unknown]
  - Gait disturbance [Unknown]
  - Product dose omission issue [Unknown]
  - Product dispensing error [Unknown]
  - Clumsiness [Unknown]
